FAERS Safety Report 11458788 (Version 1)
Quarter: 2015Q3

REPORT INFORMATION
  Report Type: Spontaneous
  Country: GB (occurrence: GB)
  Receive Date: 20150904
  Receipt Date: 20150904
  Transmission Date: 20151125
  Serious: Yes (Hospitalization, Other)
  Sender: FDA-Public Use
  Company Number: GB-PFIZER INC-2015283585

PATIENT
  Sex: Male
  Weight: 3.7 kg

DRUGS (1)
  1. PHENYTOIN. [Suspect]
     Active Substance: PHENYTOIN
     Indication: SEIZURE
     Dosage: 200 MG, DAILY
     Route: 064

REACTIONS (2)
  - Gastrointestinal haemorrhage [Recovered/Resolved]
  - Maternal exposure during pregnancy [Unknown]
